FAERS Safety Report 21465777 (Version 1)
Quarter: 2022Q4

REPORT INFORMATION
  Report Type: Report from Study
  Country: US (occurrence: US)
  Receive Date: 20221017
  Receipt Date: 20221017
  Transmission Date: 20230113
  Serious: Yes (Other)
  Sender: FDA-Public Use
  Company Number: US-TAKEDA-2022TUS073469

PATIENT
  Sex: Male
  Weight: 180 kg

DRUGS (4)
  1. VEDOLIZUMAB [Suspect]
     Active Substance: VEDOLIZUMAB
     Indication: Colitis ulcerative
     Dosage: 300 MILLIGRAM, Q4WEEKS
     Route: 042
  2. PREDNISONE [Concomitant]
     Active Substance: PREDNISONE
     Dosage: UNK
  3. LIALDA [Concomitant]
     Active Substance: MESALAMINE
     Dosage: 4.8 GRAM, QD
  4. METHOTREXATE [Concomitant]
     Active Substance: METHOTREXATE
     Dosage: UNK

REACTIONS (4)
  - Colitis ulcerative [Unknown]
  - Weight decreased [Unknown]
  - Drug ineffective [Unknown]
  - Off label use [Unknown]
